FAERS Safety Report 6919849-6 (Version None)
Quarter: 2010Q3

REPORT INFORMATION
  Report Type: 
  Country: None (occurrence: None)
  Receive Date: 20100811
  Receipt Date: 20100804
  Transmission Date: 20110219
  Serious: Yes (Other)
  Sender: FDA-Public Use
  Company Number: US-CEPHALON-US020295

PATIENT
  Sex: Female
  Weight: 46 kg

DRUGS (7)
  1. FENTORA [Suspect]
     Route: 002
     Dates: start: 20070209, end: 20070209
  2. LIDODERM [Suspect]
     Indication: PAIN
     Dosage: 4 PATCHES
     Route: 061
  3. FOSAMAX [Concomitant]
     Indication: OSTEOPOROSIS
     Route: 048
  4. ACETAMINOPHEN [Concomitant]
     Indication: PAIN
     Route: 048
  5. ARICEPT [Concomitant]
     Indication: DEMENTIA ALZHEIMER'S TYPE
     Route: 065
  6. LIPITOR [Concomitant]
     Route: 065
  7. LEXAPRO [Concomitant]
     Route: 065

REACTIONS (8)
  - ACCIDENTAL EXPOSURE [None]
  - CATATONIA [None]
  - CIRCULATORY COLLAPSE [None]
  - FLUSHING [None]
  - HEART RATE IRREGULAR [None]
  - HYPERHIDROSIS [None]
  - MENTAL STATUS CHANGES [None]
  - RESPIRATORY DEPRESSION [None]
